FAERS Safety Report 24947192 (Version 2)
Quarter: 2025Q3

REPORT INFORMATION
  Report Type: Spontaneous
  Country: US (occurrence: US)
  Receive Date: 20250210
  Receipt Date: 20250810
  Transmission Date: 20251020
  Serious: No
  Sender: ALEXION PHARMACEUTICALS
  Company Number: US-AstraZeneca-CH-00800190A

PATIENT
  Age: 62 Year
  Sex: Female

DRUGS (1)
  1. BYDUREON BCISE [Suspect]
     Active Substance: EXENATIDE
     Route: 065

REACTIONS (7)
  - Injection site pain [Unknown]
  - Injection site haemorrhage [Unknown]
  - Fear of injection [Unknown]
  - Product dose omission issue [Unknown]
  - Device issue [Unknown]
  - Device use issue [Unknown]
  - Insurance issue [Unknown]

NARRATIVE: CASE EVENT DATE: 20250109
